FAERS Safety Report 18785315 (Version 12)
Quarter: 2022Q3

REPORT INFORMATION
  Report Type: Report from Study
  Country: US (occurrence: US)
  Receive Date: 20210125
  Receipt Date: 20220829
  Transmission Date: 20221027
  Serious: Yes (Hospitalization, Other)
  Sender: FDA-Public Use
  Company Number: US-TAKEDA-US202000035

PATIENT
  Age: 75 Year
  Sex: Female

DRUGS (5)
  1. HUMAN IMMUNOGLOBULIN G [Suspect]
     Active Substance: HUMAN IMMUNOGLOBULIN G
     Indication: Primary immunodeficiency syndrome
     Dosage: 40 GRAM
     Route: 042
  2. HUMAN IMMUNOGLOBULIN G [Suspect]
     Active Substance: HUMAN IMMUNOGLOBULIN G
     Indication: Immunodeficiency common variable
     Dosage: 20 GRAM
     Route: 042
  3. HUMAN IMMUNOGLOBULIN G [Suspect]
     Active Substance: HUMAN IMMUNOGLOBULIN G
     Dosage: 80 GRAM
     Route: 042
  4. HUMAN IMMUNOGLOBULIN G [Suspect]
     Active Substance: HUMAN IMMUNOGLOBULIN G
     Dosage: 80 GRAM, Q4WEEKS
     Route: 042
  5. CUVITRU [Suspect]
     Active Substance: HUMAN IMMUNOGLOBULIN G
     Indication: Primary immunodeficiency syndrome
     Dosage: 20 GRAM, 1/WEEK
     Route: 065

REACTIONS (30)
  - COVID-19 pneumonia [Unknown]
  - Pneumonia [Unknown]
  - Acute respiratory distress syndrome [Unknown]
  - Hypervolaemia [Unknown]
  - Asthma [Unknown]
  - Back pain [Unknown]
  - Fall [Recovering/Resolving]
  - Confusional state [Unknown]
  - Sensory loss [Unknown]
  - Disorientation [Unknown]
  - Subcutaneous abscess [Recovering/Resolving]
  - Arthritis [Unknown]
  - Carpal tunnel syndrome [Unknown]
  - Proctalgia [Unknown]
  - Constipation [Unknown]
  - Urinary tract infection [Not Recovered/Not Resolved]
  - Diarrhoea [Unknown]
  - Therapy interrupted [Unknown]
  - Oxygen saturation decreased [Unknown]
  - Dizziness [Unknown]
  - Vision blurred [Recovering/Resolving]
  - Balance disorder [Unknown]
  - Face injury [Unknown]
  - Limb injury [Unknown]
  - Joint injury [Unknown]
  - Contusion [Recovering/Resolving]
  - Carbon dioxide increased [Recovering/Resolving]
  - Memory impairment [Unknown]
  - Product dose omission issue [Unknown]
  - Dental caries [Recovering/Resolving]

NARRATIVE: CASE EVENT DATE: 20210118
